FAERS Safety Report 10971366 (Version 1)
Quarter: 2015Q1

REPORT INFORMATION
  Report Type: Report from Study
  Country: AR (occurrence: AR)
  Receive Date: 20150331
  Receipt Date: 20150331
  Transmission Date: 20150721
  Serious: Yes (Hospitalization)
  Sender: FDA-Public Use
  Company Number: AR-EMD SERONO-7312456

PATIENT
  Sex: Female

DRUGS (3)
  1. REBIF [Suspect]
     Active Substance: INTERFERON BETA-1A
     Indication: MULTIPLE SCLEROSIS
     Dates: start: 20040225, end: 20090603
  2. INSULIN [Concomitant]
     Active Substance: INSULIN NOS
     Indication: TYPE 2 DIABETES MELLITUS
  3. REBIF [Suspect]
     Active Substance: INTERFERON BETA-1A
     Dates: start: 20090603

REACTIONS (9)
  - Urinary incontinence [Not Recovered/Not Resolved]
  - Apathy [Not Recovered/Not Resolved]
  - Lack of injection site rotation [Unknown]
  - Syncope [Recovering/Resolving]
  - Injection site bruising [Recovered/Resolved]
  - Arthropathy [Not Recovered/Not Resolved]
  - Amnesia [Not Recovered/Not Resolved]
  - Faecal incontinence [Not Recovered/Not Resolved]
  - Social fear [Not Recovered/Not Resolved]
